FAERS Safety Report 12344423 (Version 3)
Quarter: 2016Q3

REPORT INFORMATION
  Report Type: Spontaneous
  Country: US (occurrence: US)
  Receive Date: 20160507
  Receipt Date: 20160728
  Transmission Date: 20161109
  Serious: Yes (Hospitalization)
  Sender: FDA-Public Use
  Company Number: US-JNJFOC-20160404397

PATIENT
  Age: 47 Year
  Sex: Male

DRUGS (2)
  1. XARELTO [Suspect]
     Active Substance: RIVAROXABAN
     Indication: DEEP VEIN THROMBOSIS
     Route: 048
     Dates: start: 201408, end: 20140820
  2. XARELTO [Suspect]
     Active Substance: RIVAROXABAN
     Indication: DEEP VEIN THROMBOSIS
     Route: 048
     Dates: start: 20130614, end: 201407

REACTIONS (8)
  - Pulmonary thrombosis [Recovering/Resolving]
  - Treatment failure [Unknown]
  - Thrombosis [Recovering/Resolving]
  - Deep vein thrombosis [Recovering/Resolving]
  - Urinary tract infection [Recovering/Resolving]
  - Haemorrhagic anaemia [Recovering/Resolving]
  - Internal haemorrhage [Unknown]
  - Haematuria [Recovered/Resolved]

NARRATIVE: CASE EVENT DATE: 201407
